FAERS Safety Report 4666095-5 (Version None)
Quarter: 2005Q2

REPORT INFORMATION
  Report Type: 
  Country: None (occurrence: None)
  Receive Date: 20050519
  Receipt Date: 20050322
  Transmission Date: 20051028
  Serious: Yes (Other)
  Sender: FDA-Public Use
  Company Number: ES-GLAXOSMITHKLINE-B0375650A

PATIENT
  Age: 4 Year
  Sex: Male

DRUGS (4)
  1. BUSULPHAN [Suspect]
     Dosage: 4MGK PER DAY
     Route: 048
  2. MELPHALAN [Suspect]
     Dosage: 140MGM2 PER DAY
     Route: 042
  3. TOPOTECAN [Suspect]
     Dosage: 2MGM2 PER DAY
     Route: 042
  4. NEUPOGEN [Concomitant]
     Dosage: 12UGK TWICE PER DAY
     Route: 058

REACTIONS (2)
  - FEBRILE NEUTROPENIA [None]
  - GASTROINTESTINAL TOXICITY [None]
